FAERS Safety Report 7120053-X (Version None)
Quarter: 2010Q4

REPORT INFORMATION
  Report Type: 
  Country: None (occurrence: None)
  Receive Date: 20101123
  Receipt Date: 20101118
  Transmission Date: 20110411
  Serious: No
  Sender: FDA-Public Use
  Company Number: US-B.I. PHARMACEUTICALS,INC./RIDGEFIELD-2010-BP-13001BP

PATIENT
  Sex: Female

DRUGS (1)
  1. SPIRIVA [Suspect]
     Indication: CHRONIC OBSTRUCTIVE PULMONARY DISEASE
     Dosage: 18 MCG
     Route: 055
     Dates: start: 20101117

REACTIONS (13)
  - AGITATION [None]
  - BLOOD PRESSURE INCREASED [None]
  - COUGH [None]
  - GLOSSODYNIA [None]
  - MALAISE [None]
  - MUSCLE TWITCHING [None]
  - MYDRIASIS [None]
  - SWELLING FACE [None]
  - SWOLLEN TONGUE [None]
  - TACHYCARDIA [None]
  - TONGUE BLISTERING [None]
  - TREMOR [None]
  - VISION BLURRED [None]
